FAERS Safety Report 7207009-3 (Version None)
Quarter: 2011Q1

REPORT INFORMATION
  Report Type: 
  Country: None (occurrence: None)
  Receive Date: 20110103
  Receipt Date: 20101220
  Transmission Date: 20110831
  Serious: Yes (Other)
  Sender: FDA-Public Use
  Company Number: B0584179A

PATIENT
  Age: 11 Year
  Sex: Male

DRUGS (8)
  1. METHOTREXATE [Suspect]
     Route: 065
  2. VINCRISTINE SULFATE [Suspect]
     Route: 065
  3. CAPREOMYCIN SULFATE [Suspect]
     Route: 065
  4. CEFPIRAMIDE [Suspect]
     Route: 065
  5. ALKERAN [Suspect]
     Indication: MEDULLOBLASTOMA
     Route: 042
  6. ETOPOSIDE [Suspect]
     Route: 065
  7. THIOTEPA [Suspect]
     Route: 065
  8. CISPLATIN [Suspect]
     Route: 065

REACTIONS (2)
  - PAIN IN EXTREMITY [None]
  - BONE SARCOMA [None]
